FAERS Safety Report 10081422 (Version 1)
Quarter: 2014Q2

REPORT INFORMATION
  Report Type: Spontaneous
  Country: US (occurrence: None)
  Receive Date: 20140414
  Receipt Date: 20140414
  Transmission Date: 20141212
  Serious: Yes (Hospitalization)
  Sender: FDA-Public Use
  Company Number: 2279584

PATIENT
  Age: 70 Year
  Sex: Male

DRUGS (2)
  1. GEMCITABINE HYDROCHLORIDE [Suspect]
     Indication: BLADDER CANCER
     Dosage: DAY 1 AND DAY 8 OF EACH 21 DAY CYCLE
     Route: 041
     Dates: start: 20140123, end: 2014
  2. CISPLATIN [Suspect]
     Indication: BLADDER CANCER
     Dosage: UKNOWN(DAY 1 OF EACH 21 DAY CYCLE), UKNOWN
     Route: 041
     Dates: start: 20140123

REACTIONS (1)
  - Pulmonary embolism [None]
